FAERS Safety Report 23172676 (Version 1)
Quarter: 2023Q4

REPORT INFORMATION
  Report Type: Spontaneous
  Country: US (occurrence: US)
  Receive Date: 20231110
  Receipt Date: 20231110
  Transmission Date: 20240109
  Serious: No
  Sender: FDA-Public Use
  Company Number: US-GILEAD-2023-0650767

PATIENT
  Age: 61 Year
  Sex: Male

DRUGS (1)
  1. LENACAPAVIR [Suspect]
     Active Substance: LENACAPAVIR
     Indication: HIV infection
     Dosage: 927 MG EVERY 6 MONTHS
     Route: 058
     Dates: start: 202307

REACTIONS (3)
  - Injection site swelling [Unknown]
  - Injection site vesicles [Unknown]
  - Injection site mass [Unknown]
